FAERS Safety Report 17008957 (Version 1)
Quarter: 2019Q4

REPORT INFORMATION
  Report Type: Spontaneous
  Country: US (occurrence: US)
  Receive Date: 20191108
  Receipt Date: 20191108
  Transmission Date: 20200122
  Serious: No
  Sender: FDA-Public Use
  Company Number: US-GLAXOSMITHKLINE-US2019199371

PATIENT
  Age: 63 Year
  Sex: Male

DRUGS (1)
  1. DYAZIDE [Suspect]
     Active Substance: HYDROCHLOROTHIAZIDE\TRIAMTERENE
     Indication: MIGRAINE
     Dosage: UNK
     Route: 048
     Dates: start: 2009

REACTIONS (6)
  - Dysuria [Recovered/Resolved]
  - Burning sensation [Recovered/Resolved]
  - Hypoaesthesia [Unknown]
  - Product use in unapproved indication [Unknown]
  - Product dose omission [Unknown]
  - Vein disorder [Not Recovered/Not Resolved]

NARRATIVE: CASE EVENT DATE: 201908
